FAERS Safety Report 6285651-4 (Version None)
Quarter: 2009Q3

REPORT INFORMATION
  Report Type: 
  Country: None (occurrence: None)
  Receive Date: 20090727
  Receipt Date: 20090723
  Transmission Date: 20100115
  Serious: Yes (Hospitalization)
  Sender: FDA-Public Use
  Company Number: IT-MERCK-0907ITA00035

PATIENT
  Age: 44 Year
  Sex: Male

DRUGS (1)
  1. VYTORIN [Suspect]
     Indication: DYSLIPIDAEMIA
     Route: 048
     Dates: start: 20090601, end: 20090712

REACTIONS (2)
  - BILIARY COLIC [None]
  - CHOLECYSTITIS ACUTE [None]
